FAERS Safety Report 7908947-6 (Version None)
Quarter: 2011Q4

REPORT INFORMATION
  Report Type: 
  Country: None (occurrence: None)
  Receive Date: 20111108
  Receipt Date: 20111027
  Transmission Date: 20120403
  Serious: Yes (Other)
  Sender: FDA-Public Use
  Company Number: 2011SP050977

PATIENT
  Age: 81 Year
  Sex: Female

DRUGS (5)
  1. PROCHLORPERAZINE [Concomitant]
  2. ZOFRAN [Concomitant]
  3. TEMODAL [Suspect]
     Indication: GLIOBLASTOMA MULTIFORME
     Dosage: 250 MG
     Dates: start: 20110808
  4. DEXAMETHASONE [Concomitant]
  5. DILANTIN [Concomitant]

REACTIONS (3)
  - CONSTIPATION [None]
  - DIZZINESS [None]
  - APHASIA [None]
